FAERS Safety Report 8289382-0 (Version None)
Quarter: 2012Q1

REPORT INFORMATION
  Report Type: 
  Country: None (occurrence: None)
  Receive Date: 20120322
  Receipt Date: 20120228
  Transmission Date: 20120608
  Serious: Yes (Hospitalization)
  Sender: FDA-Public Use
  Company Number: UTC-015827

PATIENT
  Age: 53 Year
  Sex: Female
  Weight: 71.3 kg

DRUGS (4)
  1. TYVASO [Suspect]
     Indication: COR PULMONALE CHRONIC
     Dosage: 18-54 MICROGRAMS (4 IN 1 D) INHALATION
     Route: 055
     Dates: start: 20111213
  2. ADCIRCA [Concomitant]
  3. TRACLEER [Concomitant]
  4. COUMADIN [Concomitant]

REACTIONS (1)
  - INTERNATIONAL NORMALISED RATIO INCREASED [None]
